FAERS Safety Report 7088564-3 (Version None)
Quarter: 2010Q4

REPORT INFORMATION
  Report Type: 
  Country: None (occurrence: None)
  Receive Date: 20101108
  Receipt Date: 20101026
  Transmission Date: 20110411
  Serious: Yes (Other)
  Sender: FDA-Public Use
  Company Number: US-JNJFOC-20101100148

PATIENT
  Age: 12 Year
  Sex: Male

DRUGS (1)
  1. INFLIXIMAB [Suspect]
     Indication: CROHN'S DISEASE
     Dosage: CUMULATIVE DOSE OF 2.1 G ADMINISTERED
     Route: 042

REACTIONS (1)
  - PUSTULAR PSORIASIS [None]
